FAERS Safety Report 4746482-7 (Version None)
Quarter: 2005Q3

REPORT INFORMATION
  Report Type: 
  Country: None (occurrence: None)
  Receive Date: 20050817
  Receipt Date: 20050805
  Transmission Date: 20060218
  Serious: Yes (Hospitalization)
  Sender: FDA-Public Use
  Company Number: JP-JNJFOC-20050704508

PATIENT
  Sex: Male

DRUGS (8)
  1. REMICADE [Suspect]
     Indication: RHEUMATOID ARTHRITIS
     Route: 042
  2. RHEUMATREX [Suspect]
     Indication: RHEUMATOID ARTHRITIS
     Route: 048
  3. PREDNISOLONE [Suspect]
     Indication: RHEUMATOID ARTHRITIS
     Route: 048
  4. LIMETHASON [Suspect]
     Indication: RHEUMATOID ARTHRITIS
     Route: 042
  5. MOBIC [Concomitant]
     Indication: RHEUMATOID ARTHRITIS
     Route: 048
  6. LEUCOVORIN [Concomitant]
     Route: 048
  7. GASTER [Concomitant]
     Indication: GASTRITIS
     Route: 048
  8. ROCALTROL [Concomitant]
     Indication: OSTEOPOROSIS
     Dosage: ^0.5 RG^
     Route: 048

REACTIONS (1)
  - HERPES ZOSTER [None]
